FAERS Safety Report 8407183-7 (Version None)
Quarter: 2012Q2

REPORT INFORMATION
  Report Type: 
  Country: None (occurrence: None)
  Receive Date: 20120604
  Receipt Date: 20120521
  Transmission Date: 20120825
  Serious: Yes (Death, Other)
  Sender: FDA-Public Use
  Company Number: US-SANOFI-AVENTIS-2012SA036068

PATIENT
  Age: 56 Year
  Sex: Male

DRUGS (1)
  1. PLAVIX [Suspect]
     Dates: start: 20111101

REACTIONS (5)
  - ACUTE RESPIRATORY FAILURE [None]
  - BRONCHIAL SECRETION RETENTION [None]
  - HAEMORRHAGE [None]
  - MUSCULAR DYSTROPHY [None]
  - PNEUMONIA [None]
